FAERS Safety Report 9468070 (Version 1)
Quarter: 2013Q3

REPORT INFORMATION
  Report Type: Spontaneous
  Country: TR (occurrence: None)
  Receive Date: 20130814
  Receipt Date: 20130814
  Transmission Date: 20140515
  Serious: Yes (Death)
  Sender: FDA-Public Use
  Company Number: 2013P1017341

PATIENT
  Sex: 0

DRUGS (2)
  1. CHLORPROMAZINE [Suspect]
  2. DOXYLAMINE [Suspect]

REACTIONS (3)
  - Completed suicide [None]
  - Overdose [None]
  - Toxicity to various agents [None]
